FAERS Safety Report 10088150 (Version 1)
Quarter: 2014Q2

REPORT INFORMATION
  Report Type: Spontaneous
  Country: GB (occurrence: GB)
  Receive Date: 20140421
  Receipt Date: 20140421
  Transmission Date: 20141212
  Serious: Yes (Other)
  Sender: FDA-Public Use
  Company Number: GB-JNJFOC-20140407467

PATIENT
  Age: 67 Year
  Sex: Male

DRUGS (6)
  1. PARACETAMOL [Suspect]
     Indication: MUSCULOSKELETAL PAIN
     Route: 065
  2. MADOPAR [Suspect]
     Indication: PARKINSON^S DISEASE
     Dosage: 187.5
     Route: 065
  3. MADOPAR CR [Suspect]
     Indication: PARKINSON^S DISEASE
     Dosage: 2 DOSES, LONG TERM, NIGHT, SINCE 4 MONTHS
     Route: 065
  4. ASPIRIN [Concomitant]
     Indication: PRODUCT USED FOR UNKNOWN INDICATION
     Route: 065
  5. PRAMIPEXOLE [Concomitant]
     Indication: PARKINSON^S DISEASE
     Route: 065
  6. RASAGILINE [Concomitant]
     Indication: PARKINSON^S DISEASE
     Route: 065

REACTIONS (3)
  - Inhibitory drug interaction [Unknown]
  - Abasia [Recovered/Resolved]
  - Tremor [Recovered/Resolved]
